FAERS Safety Report 12808045 (Version 2)
Quarter: 2016Q4

REPORT INFORMATION
  Report Type: Spontaneous
  Country: US (occurrence: US)
  Receive Date: 20161004
  Receipt Date: 20161102
  Transmission Date: 20170207
  Serious: Yes (Other)
  Sender: FDA-Public Use
  Company Number: US-ASTRAZENECA-2016SF03784

PATIENT
  Sex: Female

DRUGS (10)
  1. PULMICORT FLEXHALER [Suspect]
     Active Substance: BUDESONIDE
     Indication: ASTHMA
     Dosage: 180.0UG UNKNOWN
     Route: 055
     Dates: start: 201511, end: 201512
  2. GENERIC CYMBALTA [Concomitant]
     Active Substance: DULOXETINE HYDROCHLORIDE
     Route: 048
     Dates: start: 2010
  3. GABAPENTIN. [Concomitant]
     Active Substance: GABAPENTIN
     Route: 048
     Dates: start: 2010
  4. PROAIR HFA [Concomitant]
     Active Substance: ALBUTEROL SULFATE
  5. PULMICORT FLEXHALER [Suspect]
     Active Substance: BUDESONIDE
     Indication: COUGH
     Dosage: 180MCG, 1 PUFF TWICE DAILY  UNKNOWN
     Route: 055
     Dates: start: 201607
  6. BUPROPRION XR [Concomitant]
     Route: 048
     Dates: start: 2008
  7. KEPPRA [Concomitant]
     Active Substance: LEVETIRACETAM
     Indication: SEIZURE
     Route: 048
     Dates: start: 2015, end: 201608
  8. PULMICORT FLEXHALER [Suspect]
     Active Substance: BUDESONIDE
     Indication: COUGH
     Dosage: 180.0UG UNKNOWN
     Route: 055
     Dates: start: 201511, end: 201512
  9. PULMICORT FLEXHALER [Suspect]
     Active Substance: BUDESONIDE
     Indication: ASTHMA
     Dosage: 180MCG, 1 PUFF TWICE DAILY  UNKNOWN
     Route: 055
     Dates: start: 201607
  10. VYVANSE [Concomitant]
     Active Substance: LISDEXAMFETAMINE DIMESYLATE
     Route: 048
     Dates: start: 2008

REACTIONS (4)
  - Cough [Unknown]
  - Device failure [Unknown]
  - Malignant melanoma [Unknown]
  - Drug dose omission [Unknown]

NARRATIVE: CASE EVENT DATE: 201607
